FAERS Safety Report 22067388 (Version 1)
Quarter: 2023Q1

REPORT INFORMATION
  Report Type: Report from Study
  Country: GB (occurrence: GB)
  Receive Date: 20230307
  Receipt Date: 20230307
  Transmission Date: 20230418
  Serious: Yes (Other)
  Sender: FDA-Public Use
  Company Number: GB-002147023-NVSC2021GB212397

PATIENT
  Sex: Female

DRUGS (2)
  1. COSENTYX [Suspect]
     Active Substance: SECUKINUMAB
     Indication: Ankylosing spondylitis
     Dosage: 150 MG, QMO
     Route: 058
     Dates: start: 2020
  2. COSENTYX [Suspect]
     Active Substance: SECUKINUMAB
     Dosage: 150 MG, QMO
     Route: 058
     Dates: start: 20210831

REACTIONS (8)
  - Ankylosing spondylitis [Unknown]
  - Lower respiratory tract infection [Unknown]
  - Ear infection [Unknown]
  - Cough [Unknown]
  - Musculoskeletal stiffness [Unknown]
  - Inflammation [Unknown]
  - Nasopharyngitis [Unknown]
  - Product dose omission issue [Unknown]
